FAERS Safety Report 20660901 (Version 1)
Quarter: 2022Q1

REPORT INFORMATION
  Report Type: Spontaneous
  Country: IE (occurrence: None)
  Receive Date: 20220331
  Receipt Date: 20220331
  Transmission Date: 20220423
  Serious: Yes (Hospitalization)
  Sender: FDA-Public Use
  Company Number: None

PATIENT
  Age: 74 Year
  Sex: Male
  Weight: 80 kg

DRUGS (12)
  1. TOCILIZUMAB [Suspect]
     Active Substance: TOCILIZUMAB
     Indication: COVID-19
     Dosage: 800MG STAT
     Route: 042
     Dates: start: 20220214
  2. PANTOPRAZOLE [Concomitant]
     Active Substance: PANTOPRAZOLE
  3. RISPERIDONE [Concomitant]
     Active Substance: RISPERIDONE
  4. LACTULOSE [Concomitant]
     Active Substance: LACTULOSE
     Dosage: 15ML TDS
  5. VENLAFAXINE [Concomitant]
     Active Substance: VENLAFAXINE HYDROCHLORIDE
  6. TRELEGY ELLIPTA [Concomitant]
     Active Substance: FLUTICASONE FUROATE\UMECLIDINIUM BROMIDE\VILANTEROL TRIFENATATE
     Indication: Chronic obstructive pulmonary disease
     Dosage: 92/55/22MG
  7. ASPIRIN [Concomitant]
     Active Substance: ASPIRIN
  8. ALTAVITA D3 [Concomitant]
     Dosage: 50,000 IU 1/7
  9. MOVICOL [Concomitant]
     Active Substance: POLYETHYLENE GLYCOL 3350\POTASSIUM CHLORIDE\SODIUM BICARBONATE\SODIUM CHLORIDE
     Dosage: T BD
  10. ROSUVASTATIN [Concomitant]
     Active Substance: ROSUVASTATIN
  11. MIRTAZAPINE [Concomitant]
     Active Substance: MIRTAZAPINE
  12. FLURAZEPAM HYDROCHLORIDE [Concomitant]
     Active Substance: FLURAZEPAM HYDROCHLORIDE

REACTIONS (1)
  - Neutropenia [Unknown]

NARRATIVE: CASE EVENT DATE: 20220307
